FAERS Safety Report 12917723 (Version 1)
Quarter: 2016Q4

REPORT INFORMATION
  Report Type: Spontaneous
  Country: US (occurrence: US)
  Receive Date: 20161107
  Receipt Date: 20161107
  Transmission Date: 20170207
  Serious: No
  Sender: FDA-Public Use
  Company Number: US-PFIZER INC-2016512884

PATIENT
  Sex: Female

DRUGS (1)
  1. XELJANZ XR [Suspect]
     Active Substance: TOFACITINIB CITRATE
     Dosage: 11 MG, UNK

REACTIONS (13)
  - Hyperaesthesia [Unknown]
  - Rash [Unknown]
  - Headache [Unknown]
  - Asthenia [Unknown]
  - Musculoskeletal stiffness [Unknown]
  - Arthralgia [Unknown]
  - Hot flush [Unknown]
  - Anxiety [Unknown]
  - Dry skin [Unknown]
  - Depression [Unknown]
  - Tinnitus [Unknown]
  - Amnesia [Unknown]
  - Pain in extremity [Unknown]
